FAERS Safety Report 8300089-3 (Version None)
Quarter: 2012Q2

REPORT INFORMATION
  Report Type: 
  Country: None (occurrence: None)
  Receive Date: 20120417
  Receipt Date: 20120223
  Transmission Date: 20120825
  Serious: Yes (Other)
  Sender: FDA-Public Use
  Company Number: 2012000080

PATIENT
  Age: 60 Year
  Sex: Male

DRUGS (3)
  1. ASPIRIN [Concomitant]
  2. ATENOLOL [Concomitant]
  3. ACEON [Suspect]
     Indication: HYPERTENSION
     Dosage: 4MG, ORAL
     Route: 048
     Dates: start: 20120215, end: 20120201

REACTIONS (2)
  - PHARYNGEAL OEDEMA [None]
  - FLUSHING [None]
